FAERS Safety Report 6077200-0 (Version None)
Quarter: 2009Q1

REPORT INFORMATION
  Report Type: 
  Country: None (occurrence: None)
  Receive Date: 20090211
  Receipt Date: 20090202
  Transmission Date: 20090719
  Serious: Yes (Hospitalization)
  Sender: FDA-Public Use
  Company Number: 2009SP001686

PATIENT
  Age: 70 Year
  Sex: Female

DRUGS (7)
  1. TEMODAL [Suspect]
     Indication: GLIOBLASTOMA
     Dosage: 150 MG
     Dates: start: 20081030, end: 20081208
  2. DEXA RATIOPHARM [Concomitant]
  3. PANTOZOL [Concomitant]
  4. DIAVAN [Concomitant]
  5. NOVALGIN [Concomitant]
  6. IDEOS [Concomitant]
  7. EMBOLEX [Concomitant]

REACTIONS (1)
  - SPINAL FRACTURE [None]
